FAERS Safety Report 24561500 (Version 1)
Quarter: 2024Q4

REPORT INFORMATION
  Report Type: Spontaneous
  Country: US (occurrence: US)
  Receive Date: 20241029
  Receipt Date: 20241029
  Transmission Date: 20250115
  Serious: No
  Sender: ROCHE
  Company Number: US-ROCHE-10000119254

PATIENT
  Sex: Female

DRUGS (21)
  1. ESBRIET [Suspect]
     Active Substance: PIRFENIDONE
     Indication: Idiopathic pulmonary fibrosis
     Dosage: TAKE 3 TABLETS BY MOUTH THREE TIMES A DAY WITH MEALS.
     Route: 048
  2. PANTOPRAZOLE [Concomitant]
     Active Substance: PANTOPRAZOLE
  3. PREDNISONE [Concomitant]
     Active Substance: PREDNISONE
  4. EPIPEN 2-PAK SOA [Concomitant]
  5. MUCINEX [Concomitant]
     Active Substance: GUAIFENESIN
  6. IBUPROFEN [Concomitant]
     Active Substance: IBUPROFEN
  7. MEDROL [Concomitant]
     Active Substance: METHYLPREDNISOLONE
  8. ONDANSETRON [Concomitant]
     Active Substance: ONDANSETRON
  9. TYLENOL [Concomitant]
     Active Substance: ACETAMINOPHEN
  10. ALBUTEROL [Concomitant]
     Active Substance: ALBUTEROL
  11. IPRATROPIUM [Concomitant]
     Active Substance: IPRATROPIUM
  12. HIGH DENSITY POLYETHYLENE [Concomitant]
     Active Substance: HIGH DENSITY POLYETHYLENE
  13. DULOXETINE [Concomitant]
     Active Substance: DULOXETINE
  14. LEVOTHYROXINE [Concomitant]
     Active Substance: LEVOTHYROXINE
  15. LORAZEPAM [Concomitant]
     Active Substance: LORAZEPAM
  16. METOPROLOL S [Concomitant]
  17. MONTELUKAST [Concomitant]
     Active Substance: MONTELUKAST
  18. HIGH DENSITY POLYETHYLENE [Concomitant]
     Active Substance: HIGH DENSITY POLYETHYLENE
  19. RANITIDINE [Concomitant]
     Active Substance: RANITIDINE
  20. ROSUVASTATIN [Concomitant]
     Active Substance: ROSUVASTATIN
  21. VENTOLIN HFA [Concomitant]
     Active Substance: ALBUTEROL SULFATE

REACTIONS (1)
  - Drug hypersensitivity [Not Recovered/Not Resolved]
